FAERS Safety Report 23014176 (Version 2)
Quarter: 2023Q4

REPORT INFORMATION
  Report Type: Report from Study
  Country: CO (occurrence: CO)
  Receive Date: 20231002
  Receipt Date: 20231009
  Transmission Date: 20240110
  Serious: Yes (Other)
  Sender: FDA-Public Use
  Company Number: CO-BAYER-2023A136667

PATIENT
  Sex: Male

DRUGS (3)
  1. EYLEA [Suspect]
     Active Substance: AFLIBERCEPT
     Indication: Diabetic retinal oedema
     Dosage: 2 MG INTRAVITREOUS MONTHLY FOR 5 MONTHS, AND THEN EVERY 2 MONTHS,BIOCULAR, SOLUTION FOR INJECTION, 4
     Dates: start: 20220618, end: 20220618
  2. EYLEA [Suspect]
     Active Substance: AFLIBERCEPT
     Dosage: 2 UNK, ONCE,BIOCULAR, SOLUTION FOR INJECTION, 40 MG/ML
     Dates: start: 20220718, end: 20220718
  3. EYLEA [Suspect]
     Active Substance: AFLIBERCEPT
     Dosage: 2 UNK, SOLUTION FOR INJECTION, 40 MG/ML
     Dates: start: 20220922, end: 20220922

REACTIONS (5)
  - Blindness [Not Recovered/Not Resolved]
  - Choroidal effusion [Unknown]
  - Inappropriate schedule of product administration [Unknown]
  - Vision blurred [Unknown]
  - Vitreous floaters [Not Recovered/Not Resolved]
